FAERS Safety Report 8608708 (Version 3)
Quarter: 2012Q4

REPORT INFORMATION
  Report Type: 
  Country: US (occurrence: US)
  Receive Date: 20120611
  Receipt Date: 20120927
  Transmission Date: 20130627
  Serious: Yes (Hospitalization, Other)
  Sender: FDA-Public Use
  Company Number: US-BRISTOL-MYERS SQUIBB COMPANY-16649402

PATIENT
  Age: 79 Year
  Sex: Male

DRUGS (1)
  1. ORENCIA FOR INJ [Suspect]
     Indication: RHEUMATOID ARTHRITIS
     Dosage: Firstinf:07Mar2012,Lastinf:01May2012.
     Route: 042
     Dates: start: 20120507

REACTIONS (2)
  - Cardiac failure congestive [Recovering/Resolving]
  - Renal disorder [Unknown]
